FAERS Safety Report 7638782-8 (Version None)
Quarter: 2011Q3

REPORT INFORMATION
  Report Type: 
  Country: None (occurrence: None)
  Receive Date: 20110727
  Receipt Date: 20110715
  Transmission Date: 20111222
  Serious: Yes (Hospitalization)
  Sender: FDA-Public Use
  Company Number: US-ROCHE-790825

PATIENT
  Sex: Male
  Weight: 75.4 kg

DRUGS (8)
  1. SANTYL [Suspect]
     Indication: ABSCESS
     Route: 061
     Dates: start: 20110707
  2. RIBAVIRIN [Suspect]
     Route: 048
     Dates: start: 20110513
  3. RIBAVIRIN [Suspect]
     Route: 048
     Dates: end: 20110707
  4. PEGINTERFERON ALFA-2A [Suspect]
     Dosage: FORM: LOI
     Route: 058
     Dates: start: 20110513, end: 20110707
  5. SULFAMETHOXAZOLE AND TRIMETHOPRIM [Suspect]
     Indication: ABSCESS
     Route: 048
  6. BLINDED BI 201335 [Suspect]
     Route: 048
     Dates: start: 20110513, end: 20110707
  7. VANCOMYCIN [Suspect]
     Indication: ABSCESS
     Route: 042
     Dates: start: 20110707, end: 20110711
  8. DOXYCYCLINE [Suspect]
     Indication: ABSCESS
     Route: 048

REACTIONS (3)
  - SEPSIS [None]
  - DEHYDRATION [None]
  - SUBCUTANEOUS ABSCESS [None]
